FAERS Safety Report 4429503-0 (Version None)
Quarter: 2004Q3

REPORT INFORMATION
  Report Type: 
  Country: None (occurrence: None)
  Receive Date: 20040819
  Receipt Date: 20040810
  Transmission Date: 20050211
  Serious: Yes (Other)
  Sender: FDA-Public Use
  Company Number: US-ROCHE-377471

PATIENT
  Age: 15 Year
  Sex: Female
  Weight: 61.2 kg

DRUGS (2)
  1. ACCUTANE [Suspect]
     Indication: DRUG USE FOR UNKNOWN INDICATION
     Route: 048
     Dates: start: 20030901, end: 20030915
  2. ORTHO TRI-CYCLEN [Concomitant]

REACTIONS (7)
  - CRYING [None]
  - DECREASED INTEREST [None]
  - MOOD ALTERED [None]
  - MOVEMENT DISORDER [None]
  - SELF-INJURIOUS IDEATION [None]
  - SOCIAL AVOIDANT BEHAVIOUR [None]
  - SUICIDAL IDEATION [None]
